FAERS Safety Report 6584751-9 (Version None)
Quarter: 2010Q1

REPORT INFORMATION
  Report Type: 
  Country: None (occurrence: None)
  Receive Date: 20100217
  Receipt Date: 20100209
  Transmission Date: 20100710
  Serious: Yes (Other)
  Sender: FDA-Public Use
  Company Number: PHHY2010JP07524

PATIENT
  Age: 58 Year
  Sex: Male

DRUGS (8)
  1. CYCLOSPORINE [Suspect]
     Indication: INTERSTITIAL LUNG DISEASE
  2. CYCLOSPORINE [Suspect]
     Indication: DERMATOMYOSITIS
  3. METHYLPREDNISOLONE [Concomitant]
     Indication: INTERSTITIAL LUNG DISEASE
     Dosage: 1 G/DAY
     Route: 042
  4. METHYLPREDNISOLONE [Concomitant]
     Indication: DERMATOMYOSITIS
  5. PREDNISOLONE [Concomitant]
     Indication: INTERSTITIAL LUNG DISEASE
     Dosage: 60 MG/DAY
  6. PREDNISOLONE [Concomitant]
     Indication: DERMATOMYOSITIS
     Dosage: 17.5 MG/DAY
  7. CYCLOPHOSPHAMIDE [Concomitant]
     Dosage: 500  MG
     Route: 042
  8. TACROLIMUS [Concomitant]
     Indication: INTERSTITIAL LUNG DISEASE

REACTIONS (5)
  - DRUG INEFFECTIVE [None]
  - HYPOXIA [None]
  - INTERSTITIAL LUNG DISEASE [None]
  - LUNG INFILTRATION [None]
  - SHRINKING LUNG SYNDROME [None]
